FAERS Safety Report 20895419 (Version 2)
Quarter: 2022Q2

REPORT INFORMATION
  Report Type: Spontaneous
  Country: ZA (occurrence: ZA)
  Receive Date: 20220531
  Receipt Date: 20220610
  Transmission Date: 20220721
  Serious: No
  Sender: FDA-Public Use
  Company Number: ZA-ELI_LILLY_AND_COMPANY-ZA202205008230

PATIENT
  Age: 57 Year
  Sex: Female
  Weight: 94.5 kg

DRUGS (2)
  1. HUMALOG MIX75/25 [Suspect]
     Active Substance: INSULIN LISPRO
     Indication: Type 2 diabetes mellitus
     Dosage: 70 U, UNK
     Route: 065
  2. METFORMIN [Concomitant]
     Active Substance: METFORMIN HYDROCHLORIDE
     Indication: Type 2 diabetes mellitus
     Dosage: UNK UNK, BID (850 BD)

REACTIONS (5)
  - Glycosylated haemoglobin increased [Unknown]
  - Hypertension [Unknown]
  - Blood cholesterol increased [Unknown]
  - Obesity [Unknown]
  - Treatment failure [Unknown]
